FAERS Safety Report 7449745-X (Version None)
Quarter: 2011Q2

REPORT INFORMATION
  Report Type: 
  Country: None (occurrence: None)
  Receive Date: 20110502
  Receipt Date: 20110420
  Transmission Date: 20111010
  Serious: Yes (Other)
  Sender: FDA-Public Use
  Company Number: IT-JNJFOC-20110408921

PATIENT
  Age: 25 Year
  Sex: Male

DRUGS (5)
  1. HALDOL [Suspect]
     Indication: PRODUCT USED FOR UNKNOWN INDICATION
     Route: 048
  2. MIRAPEXIN [Suspect]
     Indication: PRODUCT USED FOR UNKNOWN INDICATION
     Route: 048
  3. MODURETIC 5-50 [Suspect]
     Indication: PRODUCT USED FOR UNKNOWN INDICATION
     Route: 065
  4. TRITTICO [Suspect]
     Route: 048
  5. TRITTICO [Suspect]
     Indication: PRODUCT USED FOR UNKNOWN INDICATION
     Route: 065

REACTIONS (4)
  - HYPOTENSION [None]
  - VOMITING [None]
  - SELF INJURIOUS BEHAVIOUR [None]
  - SLUGGISHNESS [None]
